FAERS Safety Report 12879345 (Version 1)
Quarter: 2016Q4

REPORT INFORMATION
  Report Type: Spontaneous
  Country: US (occurrence: US)
  Receive Date: 20161025
  Receipt Date: 20161025
  Transmission Date: 20170207
  Serious: Yes (Other)
  Sender: FDA-Public Use
  Company Number: US-APOTEX-2016AP012806

PATIENT
  Age: 72 Year
  Sex: Male

DRUGS (6)
  1. DOCETAXEL INJECTION [Suspect]
     Active Substance: DOCETAXEL
     Indication: NEOPLASM MALIGNANT
     Dosage: INFUSION
     Route: 050
  2. DOCETAXEL INJECTION [Suspect]
     Active Substance: DOCETAXEL
     Dosage: 0.4 MG/ML
     Route: 023
  3. CABAZITAXEL [Suspect]
     Active Substance: CABAZITAXEL
     Indication: NEOPLASM MALIGNANT
     Dosage: INFUSION
     Route: 050
  4. PACLITAXEL. [Suspect]
     Active Substance: PACLITAXEL
     Indication: SKIN TEST
     Dosage: 0.001 MG/ML
     Route: 023
  5. DOCETAXEL INJECTION [Suspect]
     Active Substance: DOCETAXEL
     Dosage: 0.04 MG/ML
     Route: 023
  6. PACLITAXEL. [Suspect]
     Active Substance: PACLITAXEL
     Dosage: 0.01 MG/ML
     Route: 023

REACTIONS (1)
  - Type I hypersensitivity [Unknown]
